FAERS Safety Report 10459613 (Version 1)
Quarter: 2014Q3

REPORT INFORMATION
  Report Type: Spontaneous
  Country: US (occurrence: None)
  Receive Date: 20140915
  Receipt Date: 20140915
  Transmission Date: 20150326
  Serious: Yes (Other)
  Sender: FDA-Public Use
  Company Number: CPI 6321

PATIENT
  Age: 56 Year
  Sex: Female

DRUGS (3)
  1. AZATHIOPRINE. [Concomitant]
     Active Substance: AZATHIOPRINE
  2. N-ACETYLCYSTEINE [Suspect]
     Active Substance: ACETYLCYSTEINE
     Indication: INTERSTITIAL LUNG DISEASE
  3. METHYLPREDNISONE [Concomitant]
     Active Substance: METHYLPREDNISOLONE

REACTIONS (5)
  - Systemic sclerosis [None]
  - Raynaud^s phenomenon [None]
  - Scleroderma [None]
  - Gastrooesophageal reflux disease [None]
  - Oesophageal dilatation [None]

NARRATIVE: CASE EVENT DATE: 2013
